FAERS Safety Report 24576548 (Version 1)
Quarter: 2024Q4

REPORT INFORMATION
  Report Type: Spontaneous
  Country: ES (occurrence: ES)
  Receive Date: 20241104
  Receipt Date: 20241104
  Transmission Date: 20250114
  Serious: Yes (Hospitalization, Other)
  Sender: ALEXION PHARMACEUTICALS
  Company Number: ES-ASTRAZENECA-202410EEA022372ES

PATIENT
  Age: 58 Year

DRUGS (18)
  1. DAPAGLIFLOZIN [Suspect]
     Active Substance: DAPAGLIFLOZIN
     Indication: Type 2 diabetes mellitus
  2. DAPAGLIFLOZIN [Suspect]
     Active Substance: DAPAGLIFLOZIN
  3. DAPAGLIFLOZIN [Suspect]
     Active Substance: DAPAGLIFLOZIN
  4. DAPAGLIFLOZIN [Suspect]
     Active Substance: DAPAGLIFLOZIN
  5. FULVESTRANT [Suspect]
     Active Substance: FULVESTRANT
  6. FULVESTRANT [Suspect]
     Active Substance: FULVESTRANT
  7. FULVESTRANT [Suspect]
     Active Substance: FULVESTRANT
  8. FULVESTRANT [Suspect]
     Active Substance: FULVESTRANT
  9. ARIMIDEX [Suspect]
     Active Substance: ANASTROZOLE
     Indication: Breast cancer female
  10. ARIMIDEX [Suspect]
     Active Substance: ANASTROZOLE
  11. ARIMIDEX [Suspect]
     Active Substance: ANASTROZOLE
  12. ARIMIDEX [Suspect]
     Active Substance: ANASTROZOLE
  13. PALBOCICLIB [Suspect]
     Active Substance: PALBOCICLIB
  14. PALBOCICLIB [Suspect]
     Active Substance: PALBOCICLIB
  15. METFORMIN [Concomitant]
     Active Substance: METFORMIN HYDROCHLORIDE
     Indication: Type 2 diabetes mellitus
  16. ALPELISIB [Concomitant]
     Active Substance: ALPELISIB
  17. INSULIN NOS [Concomitant]
     Active Substance: INSULIN NOS
  18. LETROZOLE [Concomitant]
     Active Substance: LETROZOLE

REACTIONS (6)
  - Metastases to liver [Unknown]
  - Metastases to the mediastinum [Unknown]
  - Diabetic ketoacidosis [Unknown]
  - Tumour marker increased [Unknown]
  - Transaminases increased [Unknown]
  - Hepatic steatosis [Unknown]
